FAERS Safety Report 7102803-1 (Version None)
Quarter: 2010Q4

REPORT INFORMATION
  Report Type: 
  Country: None (occurrence: None)
  Receive Date: 20101115
  Receipt Date: 20090727
  Transmission Date: 20110411
  Serious: No
  Sender: FDA-Public Use
  Company Number: US-KINGPHARMUSA00001-K200900893

PATIENT
  Sex: Female
  Weight: 56.689 kg

DRUGS (1)
  1. LEVOXYL [Suspect]
     Indication: HYPOTHYROIDISM
     Dosage: 125 MCG, QD
     Route: 048

REACTIONS (3)
  - FEELING JITTERY [None]
  - NERVOUSNESS [None]
  - TREMOR [None]
